FAERS Safety Report 6704317-7 (Version None)
Quarter: 2010Q2

REPORT INFORMATION
  Report Type: 
  Country: None (occurrence: None)
  Receive Date: 20100423
  Receipt Date: 20100127
  Transmission Date: 20101027
  Serious: No
  Sender: FDA-Public Use
  Company Number: ALL1-2010-00432

PATIENT
  Age: 33 Year
  Sex: Female
  Weight: 59 kg

DRUGS (3)
  1. VYVANSE [Suspect]
     Indication: ATTENTION DEFICIT/HYPERACTIVITY DISORDER
     Dosage: 30 MG, 1X/DAY:QD, ORAL
     Route: 048
     Dates: end: 20100127
  2. LEVOTHROID [Concomitant]
  3. WELLBUTRIN [Concomitant]

REACTIONS (3)
  - DEPRESSED MOOD [None]
  - FLUSHING [None]
  - HEADACHE [None]
